FAERS Safety Report 7889440-6 (Version None)
Quarter: 2011Q4

REPORT INFORMATION
  Report Type: 
  Country: None (occurrence: None)
  Receive Date: 20111101
  Receipt Date: 20111026
  Transmission Date: 20120403
  Serious: Yes (Life-Threatening, Other)
  Sender: FDA-Public Use
  Company Number: 2011SP049750

PATIENT
  Age: 82 Year
  Sex: Male

DRUGS (1)
  1. ROCURONIUM BROMIDE [Suspect]
     Indication: NEUROMUSCULAR BLOCKING THERAPY
     Dosage: IV
     Route: 042

REACTIONS (4)
  - NEUROMUSCULAR BLOCKADE [None]
  - CARDIAC ARREST [None]
  - RESPIRATORY ARREST [None]
  - DRUG EFFECT PROLONGED [None]
